FAERS Safety Report 5330076-9 (Version None)
Quarter: 2007Q2

REPORT INFORMATION
  Report Type: 
  Country: None (occurrence: None)
  Receive Date: 20070521
  Receipt Date: 20070510
  Transmission Date: 20071010
  Serious: Yes (Hospitalization)
  Sender: FDA-Public Use
  Company Number: US-ROCHE-478413

PATIENT
  Age: 71 Year
  Sex: Female
  Weight: 67.6 kg

DRUGS (8)
  1. CAPECITABINE [Suspect]
     Dosage: GIVEN ON DAYS ONE TO SEVEN, FOLLOWED BY SEVEN DAYS REST.
     Route: 048
     Dates: start: 20061218, end: 20070103
  2. BEVACIZUMAB [Suspect]
     Dosage: FORM REPORTED: INFUSION
     Route: 042
     Dates: start: 20061218, end: 20070103
  3. OXALIPLATIN [Suspect]
     Dosage: FORM REPORTED: INFUSION
     Route: 042
     Dates: start: 20061218, end: 20070103
  4. FOSAMAX [Concomitant]
  5. IRON SULFATETHIAMIN COMPOUND TAB [Concomitant]
     Dates: start: 20070101
  6. PROPANOL [Concomitant]
     Dosage: DRUG NAME REPORTED AS ^PROPANOLOL^
  7. LEVOTHYROXINE SODIUM [Concomitant]
  8. LISINOPRIL [Concomitant]

REACTIONS (1)
  - SMALL INTESTINAL PERFORATION [None]
